FAERS Safety Report 8187434-7 (Version None)
Quarter: 2012Q1

REPORT INFORMATION
  Report Type: 
  Country: None (occurrence: None)
  Receive Date: 20120306
  Receipt Date: 20120227
  Transmission Date: 20120608
  Serious: Yes (Hospitalization)
  Sender: FDA-Public Use
  Company Number: JP-EISAI INC-E2090-02006-SPO-JP

PATIENT
  Sex: Female

DRUGS (4)
  1. ZONISAMIDE [Suspect]
  2. ZONISAMIDE [Suspect]
     Route: 048
     Dates: start: 20110527, end: 20110601
  3. TEGRETOL [Suspect]
     Dosage: 400 MG DAILY
     Route: 048
     Dates: start: 20110601, end: 20110608
  4. TEGRETOL [Suspect]

REACTIONS (1)
  - OCULOMUCOCUTANEOUS SYNDROME [None]
